FAERS Safety Report 8984706 (Version 1)
Quarter: 2012Q4

REPORT INFORMATION
  Report Type: Spontaneous
  Country: GB (occurrence: None)
  Receive Date: 20121217
  Receipt Date: 20121217
  Transmission Date: 20130627
  Serious: Yes (Other)
  Sender: FDA-Public Use
  Company Number: GER/UKI/12/0027025

PATIENT
  Sex: Female

DRUGS (3)
  1. RISPERIDONE (RISPERIDONE) [Suspect]
     Indication: DRUG USE FOR UNKNOWN INDICATION
  2. RISPERIDONE (RISPERIDONE) [Suspect]
     Indication: DRUG USE FOR UNKNOWN INDICATION
  3. SEROQUEL(QUETIAPINE FUMARATE) [Concomitant]

REACTIONS (3)
  - Restless legs syndrome [None]
  - Agitation [None]
  - No therapeutic response [None]
